FAERS Safety Report 4551535-2 (Version None)
Quarter: 2005Q1

REPORT INFORMATION
  Report Type: 
  Country: None (occurrence: None)
  Receive Date: 20050107
  Receipt Date: 20041229
  Transmission Date: 20050727
  Serious: Yes (Hospitalization)
  Sender: FDA-Public Use
  Company Number: 2004-12-1317

PATIENT
  Age: 78 Year
  Sex: Male

DRUGS (1)
  1. TEMODAL [Suspect]
     Indication: GLIOBLASTOMA MULTIFORME
     Dosage: 160 MG QD ORAL
     Route: 048
     Dates: start: 20041206, end: 20041210

REACTIONS (1)
  - INTESTINAL INFARCTION [None]
